FAERS Safety Report 21065779 (Version 4)
Quarter: 2022Q3

REPORT INFORMATION
  Report Type: Report from Study
  Country: CN (occurrence: CN)
  Receive Date: 20220711
  Receipt Date: 20220719
  Transmission Date: 20221027
  Serious: Yes (Death, Other)
  Sender: FDA-Public Use
  Company Number: CN-BoehringerIngelheim-2022-BI-180752

PATIENT
  Age: 49 Year
  Sex: Female

DRUGS (2)
  1. AFATINIB [Suspect]
     Active Substance: AFATINIB
     Indication: Lung adenocarcinoma stage IV
     Dates: end: 202006
  2. AFATINIB [Suspect]
     Active Substance: AFATINIB
     Indication: HER2 gene amplification

REACTIONS (4)
  - Death [Fatal]
  - Cardiac failure [Unknown]
  - Malignant neoplasm progression [Unknown]
  - Pneumonia [Unknown]

NARRATIVE: CASE EVENT DATE: 20200101
